FAERS Safety Report 6451400-X (Version None)
Quarter: 2009Q4

REPORT INFORMATION
  Report Type: 
  Country: None (occurrence: None)
  Receive Date: 20091123
  Receipt Date: 20081112
  Transmission Date: 20100525
  Serious: No
  Sender: FDA-Public Use
  Company Number: US-AMGEN-KDL318631

PATIENT
  Sex: Female

DRUGS (3)
  1. ENBREL [Suspect]
     Indication: PSORIATIC ARTHROPATHY
     Route: 058
     Dates: start: 20030601
  2. ARAVA [Concomitant]
  3. METHOTREXATE [Concomitant]

REACTIONS (2)
  - ARTHRITIS INFECTIVE [None]
  - DYSPNOEA [None]
